FAERS Safety Report 14585795 (Version 1)
Quarter: 2018Q1

REPORT INFORMATION
  Report Type: Spontaneous
  Country: JP (occurrence: JP)
  Receive Date: 20180301
  Receipt Date: 20180301
  Transmission Date: 20180509
  Serious: Yes (Other)
  Sender: FDA-Public Use
  Company Number: JP-BRISTOL-MYERS SQUIBB COMPANY-BMS-2018-017592

PATIENT
  Age: 76 Year
  Sex: Female

DRUGS (1)
  1. ORENCIA [Suspect]
     Active Substance: ABATACEPT
     Indication: PRODUCT USED FOR UNKNOWN INDICATION
     Dosage: UNK
     Route: 065

REACTIONS (9)
  - Injection site haemorrhage [Unknown]
  - Arthralgia [Unknown]
  - Abdominal pain upper [Unknown]
  - Injection site pain [Unknown]
  - Gait disturbance [Unknown]
  - Femur fracture [Unknown]
  - Joint swelling [Unknown]
  - Device leakage [Unknown]
  - Fall [Unknown]

NARRATIVE: CASE EVENT DATE: 20171019
